FAERS Safety Report 4786442-3 (Version None)
Quarter: 2005Q3

REPORT INFORMATION
  Report Type: 
  Country: None (occurrence: None)
  Receive Date: 20050914
  Receipt Date: 20050210
  Transmission Date: 20060218
  Serious: Yes (Death, Hospitalization)
  Sender: FDA-Public Use
  Company Number: 163-20785-05020217

PATIENT
  Age: 80 Year
  Sex: Female

DRUGS (1)
  1. THALOMID [Suspect]
     Indication: MULTIPLE MYELOMA
     Dosage: 100MG QD PO INCREASED BY 50MG WEEKLY, ORAL
     Route: 048
     Dates: start: 20041012

REACTIONS (8)
  - CONDITION AGGRAVATED [None]
  - DEATH [None]
  - FALL [None]
  - FEMUR FRACTURE [None]
  - HAEMATOCRIT DECREASED [None]
  - HAEMOGLOBIN DECREASED [None]
  - HIP FRACTURE [None]
  - PLATELET COUNT DECREASED [None]
